FAERS Safety Report 5749737-2 (Version None)
Quarter: 2008Q2

REPORT INFORMATION
  Report Type: 
  Country: None (occurrence: None)
  Receive Date: 20080522
  Receipt Date: 20080522
  Transmission Date: 20081010
  Serious: Yes (Hospitalization)
  Sender: FDA-Public Use
  Company Number: None

PATIENT
  Age: 63 Year
  Sex: Male
  Weight: 85.7298 kg

DRUGS (1)
  1. CIPRO [Suspect]
     Indication: BRONCHITIS
     Dosage: 2 PER DAY PO
     Route: 048
     Dates: start: 20080411, end: 20080425

REACTIONS (2)
  - ASTHENIA [None]
  - HEART RATE IRREGULAR [None]
